FAERS Safety Report 5658511-7 (Version None)
Quarter: 2008Q1

REPORT INFORMATION
  Report Type: 
  Country: None (occurrence: None)
  Receive Date: 20080310
  Receipt Date: 20070507
  Transmission Date: 20080703
  Serious: No
  Sender: FDA-Public Use
  Company Number: US-BAYER-200710741BCC

PATIENT
  Age: 60 Year
  Sex: Female
  Weight: 93 kg

DRUGS (8)
  1. ALEVE [Suspect]
     Indication: BONE DISORDER
     Dates: start: 20070306
  2. ASPIRIN [Suspect]
     Indication: ISCHAEMIC HEART DISEASE PROPHYLAXIS
     Dosage: TOTAL DAILY DOSE: 81 MG  UNIT DOSE: 81 MG
     Route: 048
  3. ALLOPURINOL [Concomitant]
  4. NEXIUM [Concomitant]
  5. GLYBURIDE [Concomitant]
  6. WELLBUTRIN [Concomitant]
  7. METFORMIN HCL [Concomitant]
  8. ALBUTEROL [Concomitant]

REACTIONS (1)
  - BLOOD GLUCOSE INCREASED [None]
